FAERS Safety Report 6312603-8 (Version None)
Quarter: 2009Q3

REPORT INFORMATION
  Report Type: 
  Country: None (occurrence: None)
  Receive Date: 20090813
  Receipt Date: 20090803
  Transmission Date: 20100115
  Serious: Yes (Hospitalization)
  Sender: FDA-Public Use
  Company Number: 2009US003000

PATIENT
  Age: 45 Year
  Sex: Female

DRUGS (4)
  1. ALEFACEPT(ALEFACEPT) INJECTION [Suspect]
     Indication: RENAL TRANSPLANT
     Dosage: 7.5 MG, TOTAL DOSE, IV NOS, 30 MG, OTHER, SUBCUTANEOUS
     Route: 042
     Dates: start: 20090708, end: 20090708
  2. ALEFACEPT(ALEFACEPT) INJECTION [Suspect]
     Indication: RENAL TRANSPLANT
     Dosage: 7.5 MG, TOTAL DOSE, IV NOS, 30 MG, OTHER, SUBCUTANEOUS
     Route: 042
     Dates: start: 20090711, end: 20090711
  3. ALEFACEPT(ALEFACEPT) INJECTION [Suspect]
     Indication: RENAL TRANSPLANT
     Dosage: 7.5 MG, TOTAL DOSE, IV NOS, 30 MG, OTHER, SUBCUTANEOUS
     Route: 042
     Dates: start: 20090715
  4. PROGRAF [Suspect]
     Indication: RENAL TRANSPLANT
     Dosage: ORAL
     Route: 048
     Dates: start: 20090708

REACTIONS (3)
  - COMPLICATIONS OF TRANSPLANTED KIDNEY [None]
  - HAEMORRHOIDAL HAEMORRHAGE [None]
  - RENAL ABSCESS [None]
